FAERS Safety Report 12518286 (Version 1)
Quarter: 2016Q2

REPORT INFORMATION
  Report Type: Spontaneous
  Country: FI (occurrence: FI)
  Receive Date: 20160630
  Receipt Date: 20160630
  Transmission Date: 20160815
  Serious: Yes (Other)
  Sender: FDA-Public Use
  Company Number: FI-JNJFOC-20160620304

PATIENT

DRUGS (1)
  1. INFLIXIMAB, RECOMBINANT [Suspect]
     Active Substance: INFLIXIMAB
     Indication: COLITIS ULCERATIVE
     Route: 042

REACTIONS (5)
  - Transaminases increased [Unknown]
  - Cytomegalovirus infection [Unknown]
  - Pneumocystis jirovecii infection [Unknown]
  - Clostridium difficile colitis [Unknown]
  - Venous thrombosis [Unknown]
